FAERS Safety Report 14957337 (Version 2)
Quarter: 2018Q2

REPORT INFORMATION
  Report Type: Spontaneous
  Country: CA (occurrence: CA)
  Receive Date: 20180531
  Receipt Date: 20180628
  Transmission Date: 20180711
  Serious: Yes (Other)
  Sender: FDA-Public Use
  Company Number: CA-PFIZER INC-2018220415

PATIENT
  Sex: Female

DRUGS (1)
  1. METHOTREXATE SODIUM. [Suspect]
     Active Substance: METHOTREXATE SODIUM
     Indication: RHEUMATOID ARTHRITIS
     Dosage: 15 MG, UNK
     Dates: start: 201610, end: 201612

REACTIONS (5)
  - Nausea [Unknown]
  - Aphthous ulcer [Unknown]
  - Diarrhoea [Unknown]
  - Infection [Unknown]
  - Intestinal haemorrhage [Unknown]
